FAERS Safety Report 8055971-1 (Version None)
Quarter: 2011Q4

REPORT INFORMATION
  Report Type: 
  Country: None (occurrence: None)
  Receive Date: 20111216
  Receipt Date: 20110118
  Transmission Date: 20120403
  Serious: Yes (Other)
  Sender: FDA-Public Use
  Company Number: 263704USA

PATIENT
  Age: 30 Year
  Sex: Female
  Weight: 78.9259 kg

DRUGS (1)
  1. PARAGARD T 380A [Suspect]
     Indication: CONTRACEPTION
     Dosage: I.U.
     Dates: start: 20071201, end: 20110113

REACTIONS (2)
  - MEDICAL DEVICE COMPLICATION [None]
  - DEVICE DISLOCATION [None]
